FAERS Safety Report 9354821 (Version 7)
Quarter: 2013Q4

REPORT INFORMATION
  Report Type: Spontaneous
  Country: GB (occurrence: GB)
  Receive Date: 20130619
  Receipt Date: 20131108
  Transmission Date: 20140711
  Serious: Yes (Other)
  Sender: FDA-Public Use
  Company Number: GB-AMGEN-GBRSP2013042240

PATIENT
  Age: 66 Year
  Sex: Female
  Weight: 46 kg

DRUGS (6)
  1. PROLIA [Suspect]
     Indication: OSTEOPOROSIS
     Dosage: 60 MG, Q6MO
     Route: 065
     Dates: start: 20121219
  2. LANSOPRAZOLE [Concomitant]
     Dosage: 30 MG, BID
  3. AMITRIPTYLINE [Concomitant]
     Dosage: 35 MG, QD
  4. TRAMADOL [Concomitant]
     Dosage: 50 MG, BID
     Route: 048
  5. CALCIUM + VITAMIN D3 [Concomitant]
     Dosage: 1 DF, BID
  6. PETHIDINE [Concomitant]
     Indication: PANCREATITIS

REACTIONS (22)
  - Condition aggravated [Not Recovered/Not Resolved]
  - Burning sensation [Not Recovered/Not Resolved]
  - Body temperature increased [Not Recovered/Not Resolved]
  - Pancreatitis acute [Not Recovered/Not Resolved]
  - Gastric haemorrhage [Not Recovered/Not Resolved]
  - Abdominal pain upper [Not Recovered/Not Resolved]
  - Oesophagitis [Not Recovered/Not Resolved]
  - Mouth ulceration [Not Recovered/Not Resolved]
  - Influenza like illness [Not Recovered/Not Resolved]
  - Vitiligo [Not Recovered/Not Resolved]
  - Dry eye [Not Recovered/Not Resolved]
  - Alopecia [Not Recovered/Not Resolved]
  - Nail growth abnormal [Not Recovered/Not Resolved]
  - Abscess [Not Recovered/Not Resolved]
  - Acrochordon [Not Recovered/Not Resolved]
  - Impaired healing [Not Recovered/Not Resolved]
  - Abscess limb [Not Recovered/Not Resolved]
  - Skin ulcer [Recovering/Resolving]
  - Feeling abnormal [Unknown]
  - Body temperature [Not Recovered/Not Resolved]
  - Nasal abscess [Not Recovered/Not Resolved]
  - Abscess jaw [Not Recovered/Not Resolved]
